FAERS Safety Report 8809600 (Version 2)
Quarter: 2012Q4

REPORT INFORMATION
  Report Type: 
  Country: US (occurrence: US)
  Receive Date: 20120926
  Receipt Date: 20121026
  Transmission Date: 20130627
  Serious: Yes (Death, Hospitalization, Other)
  Sender: FDA-Public Use
  Company Number: US-ROCHE-1103573

PATIENT
  Sex: Female

DRUGS (5)
  1. AVASTIN [Suspect]
     Indication: BREAST CANCER METASTATIC
     Route: 042
     Dates: start: 200705
  2. AVASTIN [Suspect]
     Route: 042
     Dates: start: 20071211, end: 20101005
  3. XELODA [Suspect]
     Indication: PRODUCT USED FOR UNKNOWN INDICATION
     Route: 065
     Dates: start: 200608
  4. FASLODEX [Concomitant]
  5. NAVELBINE [Concomitant]

REACTIONS (2)
  - Disease progression [Fatal]
  - Neutropenia [Unknown]
